FAERS Safety Report 24831761 (Version 1)
Quarter: 2025Q1

REPORT INFORMATION
  Report Type: Spontaneous
  Country: DE (occurrence: DE)
  Receive Date: 20250110
  Receipt Date: 20250110
  Transmission Date: 20250408
  Serious: Yes (Death, Hospitalization)
  Sender: BAYER HEALTHCARE PHARMACEUTICALS INC.
  Company Number: DE-BAYER-2025A001138

PATIENT
  Age: 45 Year
  Sex: Female

DRUGS (1)
  1. MIRENA [Suspect]
     Active Substance: LEVONORGESTREL
     Indication: Contraception
     Dosage: 20?G/DAY
     Route: 015
     Dates: start: 2013, end: 201806

REACTIONS (7)
  - Cervix carcinoma recurrent [Fatal]
  - Lymphatic system neoplasm [Fatal]
  - Lymph node rupture [None]
  - Soft tissue haemorrhage [None]
  - Abdominal wall pain [None]
  - Dyspareunia [None]
  - Genital haemorrhage [None]

NARRATIVE: CASE EVENT DATE: 20170101
